FAERS Safety Report 10266263 (Version 3)
Quarter: 2014Q3

REPORT INFORMATION
  Report Type: Spontaneous
  Country: FR (occurrence: FR)
  Receive Date: 20140627
  Receipt Date: 20140717
  Transmission Date: 20150326
  Serious: Yes (Hospitalization)
  Sender: FDA-Public Use
  Company Number: FR-BAXTER-2014BAX024539

PATIENT
  Age: 4 Year
  Sex: Female
  Weight: 15 kg

DRUGS (6)
  1. SEVOFLURANE BAXTER 1 ML/ML, LIQUIDE POUR INHALATION PAR VAPEUR [Suspect]
     Active Substance: SEVOFLURANE
     Indication: INDUCTION OF ANAESTHESIA
     Route: 055
     Dates: start: 20140402, end: 20140402
  2. NITROUS OXIDE. [Suspect]
     Active Substance: NITROUS OXIDE
     Indication: INDUCTION OF ANAESTHESIA
     Route: 055
     Dates: start: 20140402, end: 20140402
  3. BUPIVACAINE [Suspect]
     Active Substance: BUPIVACAINE
     Indication: NERVE BLOCK
     Route: 050
     Dates: start: 20140402, end: 20140402
  4. SEVOFLURANE BAXTER 1 ML/ML, LIQUIDE POUR INHALATION PAR VAPEUR [Suspect]
     Active Substance: SEVOFLURANE
     Indication: MAINTENANCE OF ANAESTHESIA
     Route: 055
  5. NITROUS OXIDE. [Suspect]
     Active Substance: NITROUS OXIDE
     Indication: MAINTENANCE OF ANAESTHESIA
  6. LIDOCAINE. [Suspect]
     Active Substance: LIDOCAINE
     Indication: NERVE BLOCK
     Route: 050
     Dates: start: 20140402, end: 20140402

REACTIONS (2)
  - Convulsion [Recovered/Resolved]
  - Subcutaneous emphysema [Recovered/Resolved]

NARRATIVE: CASE EVENT DATE: 20140402
